FAERS Safety Report 12394489 (Version 2)
Quarter: 2016Q2

REPORT INFORMATION
  Report Type: Report from Study
  Country: US (occurrence: US)
  Receive Date: 20160523
  Receipt Date: 20160601
  Transmission Date: 20160815
  Serious: Yes (Hospitalization)
  Sender: FDA-Public Use
  Company Number: US-PFIZER INC-2016234819

PATIENT
  Age: 50 Year
  Sex: Female
  Weight: 105 kg

DRUGS (11)
  1. PHENERGAN [Concomitant]
     Active Substance: PROMETHAZINE HYDROCHLORIDE
  2. BLINDED THERAPY [Suspect]
     Active Substance: INVESTIGATIONAL PRODUCT
     Indication: OVARIAN CANCER
     Dosage: 10 MG/KG, CYCLIC LOADING DOSE ONCE WEEKLY FOR 2 WEEKS
     Route: 042
     Dates: start: 20160112, end: 201601
  3. IBUPROFEN. [Concomitant]
     Active Substance: IBUPROFEN
  4. VISTARIL [Concomitant]
     Active Substance: HYDROXYZINE PAMOATE
  5. COMPAZINE [Concomitant]
     Active Substance: PROCHLORPERAZINE MALEATE
  6. DOXIL [Suspect]
     Active Substance: DOXORUBICIN HYDROCHLORIDE
     Indication: OVARIAN CANCER
     Dosage: 30 MG/M2, CYCLIC, AT ONCE EVERY 4 WEEKS FOR 6 CYCLES
     Route: 042
     Dates: start: 20160112
  7. VENLAFAXINE [Concomitant]
     Active Substance: VENLAFAXINE HYDROCHLORIDE
  8. RESTORIL /00393701/ [Concomitant]
  9. CARBOPLATIN. [Suspect]
     Active Substance: CARBOPLATIN
     Indication: OVARIAN CANCER
     Dosage: AUC 5, AT ONCE EVERY 4 WEEKS FOR 6 CYCLES
     Route: 042
     Dates: start: 20160112
  10. BLINDED THERAPY [Suspect]
     Active Substance: INVESTIGATIONAL PRODUCT
     Dosage: 5 MG/KG, WEEKLY
     Route: 042
     Dates: start: 201601
  11. ATIVAN [Concomitant]
     Active Substance: LORAZEPAM

REACTIONS (4)
  - Nausea [Recovered/Resolved]
  - Vomiting [Recovered/Resolved]
  - Dehydration [Recovered/Resolved]
  - Lipase increased [Recovered/Resolved]

NARRATIVE: CASE EVENT DATE: 20160317
